FAERS Safety Report 7205490-7 (Version None)
Quarter: 2010Q4

REPORT INFORMATION
  Report Type: 
  Country: None (occurrence: None)
  Receive Date: 20101231
  Receipt Date: 20101224
  Transmission Date: 20110411
  Serious: Yes (Hospitalization, Other)
  Sender: FDA-Public Use
  Company Number: PHHY2010JP71644

PATIENT
  Age: 69 Year
  Sex: Male

DRUGS (6)
  1. AFINITOR [Suspect]
     Indication: RENAL CELL CARCINOMA
     Dosage: 10 MG, UNK
     Route: 048
     Dates: start: 20101012, end: 20101028
  2. SORAFENIB TOSILATE [Concomitant]
     Indication: RENAL CELL CARCINOMA
     Dosage: 400 MG, UNK
     Route: 048
     Dates: start: 20080514, end: 20101011
  3. SORAFENIB TOSILATE [Concomitant]
     Dosage: 600 MG, UNK
     Route: 048
  4. KADIAN [Concomitant]
     Dosage: 90 MG, UNK
     Route: 048
     Dates: start: 20101012
  5. AMLODIPINE BESYLATE [Concomitant]
     Dosage: 10 MG, UNK
     Route: 048
     Dates: start: 20101012
  6. OLMETEC [Concomitant]
     Dosage: 40 MG, UNK
     Route: 048
     Dates: start: 20101012

REACTIONS (6)
  - ACUTE RESPIRATORY DISTRESS SYNDROME [None]
  - LUNG DISORDER [None]
  - MALIGNANT NEOPLASM PROGRESSION [None]
  - STOMATITIS [None]
  - VISUAL IMPAIRMENT [None]
  - VITREOUS HAEMORRHAGE [None]
